FAERS Safety Report 9251126 (Version 1)
Quarter: 2013Q1

REPORT INFORMATION
  Report Type: Spontaneous
  Country: US (occurrence: None)
  Receive Date: 20130305
  Receipt Date: 20130305
  Transmission Date: 20140127
  Serious: Yes (Other)
  Sender: FDA-Public Use
  Company Number: 163-21880-12090111

PATIENT
  Age: 73 Year
  Sex: Male

DRUGS (4)
  1. REVLIMID [Suspect]
     Indication: PLASMA CELL MYELOMA
     Dosage: 25 MG, 21 IN 21 D, PO?TEMPORARILY INTERRUPTED
     Route: 048
     Dates: start: 20120127
  2. VITAMIN B-6 (PYRIDOXINE HYDROCHLORIDE) (UNKNOWN) [Concomitant]
  3. THERAGRAN-M ADVANCED 50 PLUS (THERAGRAN-M) (UNKNOWN) [Concomitant]
  4. LEVAQUIN (LEVOFLOXACIN) (UNKNOWN) [Concomitant]

REACTIONS (3)
  - Urinary tract infection [None]
  - Rash [None]
  - Blister [None]
